FAERS Safety Report 4943388-5 (Version None)
Quarter: 2006Q1

REPORT INFORMATION
  Report Type: 
  Country: None (occurrence: None)
  Receive Date: 20060314
  Receipt Date: 20060308
  Transmission Date: 20060701
  Serious: Yes (Life-Threatening, Hospitalization)
  Sender: FDA-Public Use
  Company Number: DE-BRISTOL-MYERS SQUIBB COMPANY-13313903

PATIENT
  Age: 32 Year
  Sex: Female
  Weight: 59 kg

DRUGS (4)
  1. CYCLOPHOSPHAMIDE [Suspect]
     Indication: ACUTE LYMPHOCYTIC LEUKAEMIA
     Route: 042
     Dates: start: 20060106, end: 20060106
  2. UROMITEXAN [Concomitant]
  3. NEUPOGEN [Concomitant]
  4. MERCAPTOPURINE [Concomitant]

REACTIONS (3)
  - BLOOD SODIUM DECREASED [None]
  - DYSPNOEA [None]
  - INAPPROPRIATE ANTIDIURETIC HORMONE SECRETION [None]
